FAERS Safety Report 9980980 (Version 2)
Quarter: 2014Q1

REPORT INFORMATION
  Report Type: Report from Study
  Country: US (occurrence: US)
  Receive Date: 20140307
  Receipt Date: 20140307
  Transmission Date: 20141002
  Serious: Yes (Other)
  Sender: FDA-Public Use
  Company Number: US-BAYER-2014-030362

PATIENT
  Age: 57 Year
  Sex: Female

DRUGS (2)
  1. BETASERON [Suspect]
     Indication: MULTIPLE SCLEROSIS
     Dosage: 2 MIU, QOD
     Route: 058
     Dates: start: 20140218
  2. IBUPROFEN [Concomitant]
     Indication: PREMEDICATION
     Dosage: 400 MG, QOD

REACTIONS (2)
  - Tooth abscess [Not Recovered/Not Resolved]
  - Swelling face [Not Recovered/Not Resolved]
